FAERS Safety Report 5054497-7 (Version None)
Quarter: 2006Q3

REPORT INFORMATION
  Report Type: 
  Country: None (occurrence: None)
  Receive Date: 20060713
  Receipt Date: 20060628
  Transmission Date: 20061208
  Serious: Yes (Other)
  Sender: FDA-Public Use
  Company Number: 2006PV015659

PATIENT
  Age: 67 Year
  Sex: Male
  Weight: 111.1313 kg

DRUGS (11)
  1. BYETTA [Suspect]
     Indication: DIABETES MELLITUS NON-INSULIN-DEPENDENT
     Dosage: SEE IMAGE
     Route: 058
     Dates: start: 20060510, end: 20060605
  2. BYETTA [Suspect]
     Indication: DIABETES MELLITUS NON-INSULIN-DEPENDENT
     Dosage: SEE IMAGE
     Route: 058
     Dates: start: 20060606, end: 20060613
  3. METFORMIN [Concomitant]
  4. PREVACID [Concomitant]
  5. TOPROL-XL [Concomitant]
  6. ZOCOR [Concomitant]
  7. LISINOPRIL [Concomitant]
  8. DOXAZOSIN [Concomitant]
  9. DYAZIDE [Concomitant]
  10. VERAPAMIL [Concomitant]
  11. MOTRIN [Concomitant]

REACTIONS (13)
  - AORTIC ANEURYSM [None]
  - APPENDIX DISORDER [None]
  - BACK PAIN [None]
  - BLOOD GLUCOSE INCREASED [None]
  - CHOLELITHIASIS [None]
  - DECREASED APPETITE [None]
  - DIVERTICULUM [None]
  - FATIGUE [None]
  - PANCREATITIS ACUTE [None]
  - PROSTATE EXAMINATION ABNORMAL [None]
  - RENAL CYST [None]
  - RENAL MASS [None]
  - WEIGHT DECREASED [None]
